FAERS Safety Report 6829787-5 (Version None)
Quarter: 2010Q3

REPORT INFORMATION
  Report Type: 
  Country: None (occurrence: None)
  Receive Date: 20100709
  Receipt Date: 20071008
  Transmission Date: 20110219
  Serious: No
  Sender: FDA-Public Use
  Company Number: US-PFIZER INC-2007016745

PATIENT
  Sex: Male
  Weight: 108.86 kg

DRUGS (3)
  1. CHANTIX [Suspect]
     Indication: EX-TOBACCO USER
     Dates: start: 20070101
  2. OTHER DERMATOLOGICAL PREPARATIONS [Concomitant]
  3. ANTIBIOTICS [Concomitant]

REACTIONS (2)
  - DRUG SCREEN POSITIVE [None]
  - SKIN DISORDER [None]
